FAERS Safety Report 7301097-1 (Version None)
Quarter: 2011Q1

REPORT INFORMATION
  Report Type: 
  Country: None (occurrence: None)
  Receive Date: 20110218
  Receipt Date: 20110212
  Transmission Date: 20110831
  Serious: Yes (Hospitalization)
  Sender: FDA-Public Use
  Company Number: US-BRISTOL-MYERS SQUIBB COMPANY-15548118

PATIENT
  Sex: Male

DRUGS (3)
  1. COUMADIN [Suspect]
     Indication: ATRIAL FIBRILLATION
  2. PLAVIX [Suspect]
  3. ASPIRIN [Suspect]

REACTIONS (2)
  - STENT PLACEMENT [None]
  - RASH [None]
